FAERS Safety Report 7904952-4 (Version None)
Quarter: 2011Q4

REPORT INFORMATION
  Report Type: 
  Country: None (occurrence: None)
  Receive Date: 20111109
  Receipt Date: 20111102
  Transmission Date: 20120403
  Serious: Yes (Other)
  Sender: FDA-Public Use
  Company Number: PHHY2011AU96958

PATIENT
  Sex: Male

DRUGS (1)
  1. CLOZARIL [Suspect]
     Indication: SCHIZOPHRENIA

REACTIONS (4)
  - CHEST PAIN [None]
  - TACHYCARDIA [None]
  - INFLUENZA LIKE ILLNESS [None]
  - TROPONIN INCREASED [None]
